FAERS Safety Report 7446784-X (Version None)
Quarter: 2011Q2

REPORT INFORMATION
  Report Type: 
  Country: None (occurrence: None)
  Receive Date: 20110429
  Receipt Date: 20101022
  Transmission Date: 20111010
  Serious: No
  Sender: FDA-Public Use
  Company Number: US-ASTRAZENECA-2010SE50521

PATIENT
  Sex: Female

DRUGS (2)
  1. PLAVIX [Interacting]
     Route: 065
  2. NEXIUM [Suspect]
     Route: 048

REACTIONS (3)
  - ABDOMINAL DISCOMFORT [None]
  - DIVERTICULITIS [None]
  - DRUG INTERACTION [None]
